FAERS Safety Report 7352119-3 (Version None)
Quarter: 2011Q1

REPORT INFORMATION
  Report Type: 
  Country: None (occurrence: None)
  Receive Date: 20110315
  Receipt Date: 20110303
  Transmission Date: 20110831
  Serious: Yes (Other)
  Sender: FDA-Public Use
  Company Number: US-TYCO HEALTHCARE/MALLINCKRODT-T201100569

PATIENT
  Sex: Female

DRUGS (2)
  1. OPTIMARK [Suspect]
     Indication: IMAGING PROCEDURE
     Dosage: UNK
     Dates: start: 20091103, end: 20091103
  2. NSAID'S [Concomitant]
     Dosage: UNK

REACTIONS (1)
  - NEPHROGENIC SYSTEMIC FIBROSIS [None]
